FAERS Safety Report 18705872 (Version 1)
Quarter: 2021Q1

REPORT INFORMATION
  Report Type: Spontaneous
  Country: US (occurrence: US)
  Receive Date: 20210105
  Receipt Date: 20210105
  Transmission Date: 20210419
  Serious: Yes (Hospitalization)
  Sender: FDA-Public Use
  Company Number: None

PATIENT
  Sex: Female

DRUGS (15)
  1. DILITAZEM [Concomitant]
  2. AMOX/K CLAV [Concomitant]
     Active Substance: AMOXICILLIN\CLAVULANATE POTASSIUM
  3. RESTORA [Concomitant]
  4. ESTRADIOL. [Concomitant]
     Active Substance: ESTRADIOL
  5. EZETIMIBE. [Concomitant]
     Active Substance: EZETIMIBE
  6. LISINOPRIL. [Concomitant]
     Active Substance: LISINOPRIL
  7. PROPRANOLOL [Concomitant]
     Active Substance: PROPRANOLOL HYDROCHLORIDE
  8. ZOLIPIDEM [Concomitant]
  9. PROLIA [Suspect]
     Active Substance: DENOSUMAB
     Indication: SENILE OSTEOPOROSIS
     Dosage: ?          OTHER FREQUENCY:EVERY 6 MONTHS;?
     Route: 058
     Dates: start: 20200728
  10. ALBUTEROL. [Concomitant]
     Active Substance: ALBUTEROL
  11. ATORVASTATIN [Concomitant]
     Active Substance: ATORVASTATIN
  12. CELECOXIB. [Concomitant]
     Active Substance: CELECOXIB
  13. CHLORHEX GLU [Concomitant]
     Active Substance: CHLORHEXIDINE GLUCONATE
  14. ELIQUIS [Concomitant]
     Active Substance: APIXABAN
  15. HYDROCHLOROT TAB [Concomitant]

REACTIONS (1)
  - Surgery [None]
